FAERS Safety Report 7080673-8 (Version None)
Quarter: 2010Q4

REPORT INFORMATION
  Report Type: 
  Country: None (occurrence: None)
  Receive Date: 20101103
  Receipt Date: 20101025
  Transmission Date: 20110411
  Serious: Yes (Death, Other)
  Sender: FDA-Public Use
  Company Number: DE-SANOFI-AVENTIS-2010SA033702

PATIENT
  Age: 26 Year
  Sex: Female
  Weight: 118 kg

DRUGS (4)
  1. CLEXANE [Suspect]
     Indication: THROMBOSIS PROPHYLAXIS
     Route: 058
     Dates: start: 20100527, end: 20100529
  2. OXYCODONE HCL [Concomitant]
     Indication: PAIN
     Route: 048
     Dates: start: 20100528, end: 20100528
  3. ARCOXIA [Concomitant]
     Indication: PAIN
     Route: 048
     Dates: start: 20100527, end: 20100529
  4. PANTOPRAZOLE SODIUM [Concomitant]
     Route: 048
     Dates: start: 20100527, end: 20100529

REACTIONS (1)
  - PULMONARY EMBOLISM [None]
